FAERS Safety Report 8856544 (Version 2)
Quarter: 2012Q4

REPORT INFORMATION
  Report Type: Spontaneous
  Country: US (occurrence: None)
  Receive Date: 20121018
  Receipt Date: 20121130
  Transmission Date: 20130627
  Serious: Yes (Death)
  Sender: FDA-Public Use
  Company Number: UTC-024082

PATIENT
  Age: 73 Year
  Sex: Female

DRUGS (11)
  1. TREPROSTINIL SODIUM [Suspect]
     Indication: PRIMARY PULMONARY HYPERTENSION
     Dosage: 76.32 ug/kg (0.053 ug/kg,l in 1 min),Intravenous drip
     Route: 041
     Dates: start: 20120103
  2. CELLCEPT(MYCOPHENOLATE MOFETIL) [Concomitant]
  3. PREDNISONE [Concomitant]
  4. REVATIO (SILDENAFIL CITRATE) [Concomitant]
  5. XOPENEX (LEVOSALBUTAMOL) [Concomitant]
  6. DICLOFENAC SODIUM [Concomitant]
  7. LEVOTHYROXINE [Concomitant]
  8. LOVASTATIN [Concomitant]
  9. POTASSIUM [Concomitant]
  10. FUROSEMIDE [Concomitant]
  11. MISOPROSTOL [Concomitant]

REACTIONS (2)
  - Death [None]
  - Pulmonary hypertension [None]
